FAERS Safety Report 4429826-5 (Version None)
Quarter: 2004Q3

REPORT INFORMATION
  Report Type: 
  Country: None (occurrence: None)
  Receive Date: 20040817
  Receipt Date: 20040802
  Transmission Date: 20050211
  Serious: Yes (Hospitalization)
  Sender: FDA-Public Use
  Company Number: 04P-163-0261005-00

PATIENT
  Age: 66 Year
  Sex: Male
  Weight: 80.5 kg

DRUGS (2)
  1. ZEMPLAR [Suspect]
     Dates: end: 20040507
  2. FENTANYL [Concomitant]

REACTIONS (1)
  - PROCTALGIA [None]
